FAERS Safety Report 10206506 (Version 1)
Quarter: 2014Q2

REPORT INFORMATION
  Report Type: Spontaneous
  Country: BE (occurrence: BE)
  Receive Date: 20140530
  Receipt Date: 20140530
  Transmission Date: 20141212
  Serious: Yes (Other)
  Sender: FDA-Public Use
  Company Number: BE-JNJFOC-20140517662

PATIENT
  Age: 34 Year
  Sex: Female

DRUGS (3)
  1. RIVAROXABAN [Suspect]
     Indication: DEEP VEIN THROMBOSIS
     Route: 048
  2. POTASSIUM IODIDE [Concomitant]
     Indication: ERYTHEMA NODOSUM
     Route: 065
  3. DESOGESTREL [Concomitant]
     Route: 065
     Dates: start: 201303

REACTIONS (1)
  - Deep vein thrombosis [Unknown]
